FAERS Safety Report 22660575 (Version 1)
Quarter: 2023Q2

REPORT INFORMATION
  Report Type: Spontaneous
  Country: US (occurrence: US)
  Receive Date: 20230630
  Receipt Date: 20230630
  Transmission Date: 20230721
  Serious: Yes (Hospitalization)
  Sender: FDA-Public Use
  Company Number: US-VERTEX PHARMACEUTICALS-2020-016632

PATIENT
  Sex: Male

DRUGS (2)
  1. ORKAMBI [Suspect]
     Active Substance: IVACAFTOR\LUMACAFTOR
     Indication: Cystic fibrosis
     Dosage: 100 MG LUMACAFTOR/125 MG IVACAFTOR
     Route: 048
     Dates: start: 20200227, end: 20200630
  2. ORKAMBI [Suspect]
     Active Substance: IVACAFTOR\LUMACAFTOR
     Dosage: 100 MG LUMACAFTOR/125 MG IVACAFTOR
     Route: 048
     Dates: start: 20200930

REACTIONS (5)
  - Gastroenteritis viral [Unknown]
  - Vomiting [Unknown]
  - Gastrointestinal disorder [Unknown]
  - Hepatic enzyme increased [Recovering/Resolving]
  - Liver disorder [Unknown]

NARRATIVE: CASE EVENT DATE: 20200101
